FAERS Safety Report 11690629 (Version 12)
Quarter: 2019Q3

REPORT INFORMATION
  Report Type: Spontaneous
  Country: US (occurrence: US)
  Receive Date: 20151102
  Receipt Date: 20190719
  Transmission Date: 20191004
  Serious: Yes (Other)
  Sender: FDA-Public Use
  Company Number: US-SA-2015SA170846

PATIENT
  Age: 65 Year
  Sex: Female

DRUGS (15)
  1. AMLODIPINE [Concomitant]
     Active Substance: AMLODIPINE BESYLATE
     Dosage: UNK
  2. NORVASC [Concomitant]
     Active Substance: AMLODIPINE BESYLATE
  3. AUBAGIO [Suspect]
     Active Substance: TERIFLUNOMIDE
     Dosage: 1 DF, QD
     Route: 048
  4. AMPYRA [Concomitant]
     Active Substance: DALFAMPRIDINE
     Dosage: UNK
  5. BRIMONIDINE [Concomitant]
     Active Substance: BRIMONIDINE TARTRATE
     Dosage: UNK
  6. CORTICOTROPIN [Suspect]
     Active Substance: CORTICOTROPIN
     Indication: MULTIPLE SCLEROSIS
     Dosage: UNK UNK,UNK
     Route: 061
     Dates: start: 201506
  7. OXYCODONE [Concomitant]
     Active Substance: OXYCODONE
     Dosage: UNK
  8. UNISOM [DIPHENHYDRAMINE HYDROCHLORIDE] [Concomitant]
  9. VITAMIN D3 [Concomitant]
     Active Substance: CHOLECALCIFEROL
     Dosage: 10000 UNIT
  10. AUBAGIO [Suspect]
     Active Substance: TERIFLUNOMIDE
     Indication: MULTIPLE SCLEROSIS
     Dosage: 14 MG,QD
     Route: 048
     Dates: start: 20150801
  11. OXYBUTYNIN. [Concomitant]
     Active Substance: OXYBUTYNIN CHLORIDE
     Dosage: UNK
  12. BIOTIN [Concomitant]
     Active Substance: BIOTIN
     Dosage: UNK
  13. ALPRAZOLAM. [Concomitant]
     Active Substance: ALPRAZOLAM
     Dosage: UNK
  14. PERCOCET [Concomitant]
     Active Substance: ACETAMINOPHEN\OXYCODONE HYDROCHLORIDE
  15. BUPROPION. [Concomitant]
     Active Substance: BUPROPION
     Dosage: UNK

REACTIONS (15)
  - Dry eye [Unknown]
  - Emotional disorder [Unknown]
  - Decreased interest [Unknown]
  - Onychoclasis [Unknown]
  - Onychomadesis [Unknown]
  - Alopecia [Recovering/Resolving]
  - Muscular weakness [Unknown]
  - Tendonitis [Unknown]
  - Fall [Unknown]
  - Alopecia [Recovering/Resolving]
  - Hypoaesthesia [Unknown]
  - Depressed mood [Unknown]
  - Pain in extremity [Unknown]
  - Glaucoma [Unknown]
  - Micturition urgency [Unknown]

NARRATIVE: CASE EVENT DATE: 201509
